FAERS Safety Report 9331708 (Version 1)
Quarter: 2013Q2

REPORT INFORMATION
  Report Type: Spontaneous
  Country: US (occurrence: US)
  Receive Date: 20130605
  Receipt Date: 20130605
  Transmission Date: 20140414
  Serious: No
  Sender: FDA-Public Use
  Company Number: US-ASTRAZENECA-2013SE37276

PATIENT
  Age: 63 Year
  Sex: Female
  Weight: 62.1 kg

DRUGS (1)
  1. PULMICORT FLEXHALER [Suspect]
     Dosage: 90 MCG, TWO PUFFS, BID
     Route: 055
     Dates: start: 20130521

REACTIONS (2)
  - Nausea [Unknown]
  - Therapeutic response unexpected [Unknown]
